FAERS Safety Report 9045396 (Version 1)
Quarter: 2013Q1

REPORT INFORMATION
  Report Type: Report from Study
  Country: US (occurrence: US)
  Receive Date: 20130131
  Receipt Date: 20130131
  Transmission Date: 20140127
  Serious: No
  Sender: FDA-Public Use
  Company Number: US-ABBOTT-12P-163-1003681-00

PATIENT
  Age: 53 Year
  Sex: Male

DRUGS (5)
  1. HUMIRA [Suspect]
     Indication: PSORIASIS
     Route: 058
     Dates: start: 20120729
  2. SYNTHROID [Concomitant]
     Indication: AUTOIMMUNE THYROIDITIS
  3. DEPAKOTE [Concomitant]
     Indication: HEAD INJURY
     Dosage: 1 TAB IN THE MORNING AND 2 TABS AT NIGHT
  4. DEPAKOTE [Concomitant]
     Indication: NECK INJURY
  5. EFFEXOR [Concomitant]
     Indication: DEPRESSION

REACTIONS (5)
  - Haemorrhage [Recovering/Resolving]
  - Pyrexia [Recovering/Resolving]
  - Pain [Recovering/Resolving]
  - Swelling [Recovering/Resolving]
  - Abscess [Recovering/Resolving]
